FAERS Safety Report 8151130-2 (Version None)
Quarter: 2012Q1

REPORT INFORMATION
  Report Type: 
  Country: None (occurrence: None)
  Receive Date: 20120220
  Receipt Date: 20120214
  Transmission Date: 20120608
  Serious: Yes (Death)
  Sender: FDA-Public Use
  Company Number: US-GLAXOSMITHKLINE-A0963518A

PATIENT
  Age: 77 Year
  Sex: Male

DRUGS (11)
  1. RYTHMOL SR [Suspect]
     Indication: ATRIAL FIBRILLATION
     Dosage: 225MG PER DAY
     Route: 048
     Dates: end: 20120120
  2. VITAMIN D [Concomitant]
  3. LISINOPRIL [Concomitant]
  4. AMARYL [Concomitant]
  5. AMITRIPTYLINE HCL [Concomitant]
  6. FISH OIL [Concomitant]
  7. SODIUM BICARBONATE [Concomitant]
  8. M.V.I. [Concomitant]
  9. INSULIN [Concomitant]
  10. ASPIRIN [Concomitant]
  11. TOPROL-XL [Concomitant]

REACTIONS (3)
  - GENERAL PHYSICAL HEALTH DETERIORATION [None]
  - RENAL FAILURE [None]
  - RENAL FAILURE ACUTE [None]
